FAERS Safety Report 5907775-0 (Version None)
Quarter: 2008Q3

REPORT INFORMATION
  Report Type: 
  Country: None (occurrence: None)
  Receive Date: 20080929
  Receipt Date: 20080916
  Transmission Date: 20090109
  Serious: Yes (Other)
  Sender: FDA-Public Use
  Company Number: 08-001503

PATIENT
  Age: 39 Year
  Sex: Female
  Weight: 113.4 kg

DRUGS (6)
  1. FEMCON FE [Suspect]
     Indication: VAGINAL HAEMORRHAGE
     Dosage: 0.4MG/35MCG, QD, ORAL
     Route: 048
     Dates: start: 20080701
  2. FLUVOXAMINE MALEATE [Concomitant]
  3. COLESTID [Concomitant]
  4. BENADRYL [Concomitant]
  5. IRON (IRON) [Concomitant]
  6. ACIPHEX (RABEPROAZOLE SODIUM) [Concomitant]

REACTIONS (4)
  - BLOOD PRESSURE FLUCTUATION [None]
  - HEART RATE INCREASED [None]
  - HYPERTENSION [None]
  - MIGRAINE [None]
